FAERS Safety Report 8372989-X (Version None)
Quarter: 2012Q2

REPORT INFORMATION
  Report Type: 
  Country: None (occurrence: None)
  Receive Date: 20120521
  Receipt Date: 20111220
  Transmission Date: 20120825
  Serious: No
  Sender: FDA-Public Use
  Company Number: US-ASTRAZENECA-2012SE00818

PATIENT
  Age: 68 Year
  Sex: Male

DRUGS (5)
  1. GLUCOSAMINE [Concomitant]
     Dosage: UNKNOWN
  2. CALTRATE 600 + D [Concomitant]
     Dosage: UNKNOWN
  3. ARTHRITIS MEDICATIONS [Concomitant]
     Dosage: UNKNOWN
  4. PRILOSEC OTC [Suspect]
     Route: 048
     Dates: start: 20111206, end: 20111220
  5. VITAMIN TAB [Concomitant]
     Dosage: UNKNOWN

REACTIONS (1)
  - BLOOD URINE PRESENT [None]
